FAERS Safety Report 20579793 (Version 2)
Quarter: 2022Q2

REPORT INFORMATION
  Report Type: Spontaneous
  Country: JP (occurrence: JP)
  Receive Date: 20220310
  Receipt Date: 20220411
  Transmission Date: 20220720
  Serious: Yes (Death, Other)
  Sender: FDA-Public Use
  Company Number: JP-JAZZ-2021-JP-017986

PATIENT
  Age: 13 Year
  Sex: Male
  Weight: 33.1 kg

DRUGS (1)
  1. DEFITELIO [Suspect]
     Active Substance: DEFIBROTIDE SODIUM
     Indication: Venoocclusive liver disease
     Dosage: 26 MILLIGRAM/KILOGRAM, QD (26 MG/KG/24HOURS)
     Route: 042
     Dates: start: 20200724, end: 20200816

REACTIONS (2)
  - Meningitis bacterial [Fatal]
  - Off label use [Unknown]

NARRATIVE: CASE EVENT DATE: 20140724
